FAERS Safety Report 4461726-7 (Version None)
Quarter: 2004Q3

REPORT INFORMATION
  Report Type: 
  Country: None (occurrence: None)
  Receive Date: 20040929
  Receipt Date: 20040907
  Transmission Date: 20050211
  Serious: Yes (Other)
  Sender: FDA-Public Use
  Company Number: PHRM2004FR02735

PATIENT
  Age: 67 Year
  Sex: Female

DRUGS (12)
  1. TRILEPTAL [Suspect]
     Dosage: 600 MG DAILY
     Route: 048
  2. DIAMICRON [Suspect]
     Indication: DIABETES MELLITUS
     Dosage: 120 MG DAILY
     Route: 048
     Dates: start: 20030517
  3. VASTAREL [Concomitant]
     Route: 048
  4. FORLAX [Concomitant]
     Route: 048
  5. DIGOXIN [Concomitant]
  6. ALDALIX [Concomitant]
  7. RIVOTRIL [Concomitant]
     Route: 048
  8. ZOPICLONE [Concomitant]
  9. VASTAREL [Concomitant]
     Dosage: 35 MG DAILY
  10. TIMOPTIC [Concomitant]
  11. LUMIGAN [Concomitant]
  12. LAROXYL [Concomitant]
     Route: 048

REACTIONS (2)
  - DIABETES MELLITUS [None]
  - HYPOGLYCAEMIA [None]
